FAERS Safety Report 4562685-9 (Version None)
Quarter: 2005Q1

REPORT INFORMATION
  Report Type: 
  Country: None (occurrence: None)
  Receive Date: 20050124
  Receipt Date: 20050111
  Transmission Date: 20050727
  Serious: Yes (Life-Threatening, Hospitalization, Disabling)
  Sender: FDA-Public Use
  Company Number: 200412251BCC

PATIENT
  Age: 52 Year
  Sex: Female
  Weight: 75.7507 kg

DRUGS (1)
  1. ALKA-SELTZER PLUS NIGHT TIME COLD [Suspect]
     Indication: NASOPHARYNGITIS
     Dosage: QD, ORAL
     Route: 048
     Dates: start: 19990122, end: 19990126

REACTIONS (13)
  - ARTERIAL RUPTURE [None]
  - ATELECTASIS [None]
  - CONVULSION [None]
  - DEAFNESS UNILATERAL [None]
  - HAIR GROWTH ABNORMAL [None]
  - HEADACHE [None]
  - INTRACRANIAL ANEURYSM [None]
  - LOSS OF CONSCIOUSNESS [None]
  - POST PROCEDURAL COMPLICATION [None]
  - SCAR [None]
  - SUBARACHNOID HAEMORRHAGE [None]
  - SUBDURAL HAEMATOMA [None]
  - VOMITING [None]
